FAERS Safety Report 6247547-3 (Version None)
Quarter: 2009Q2

REPORT INFORMATION
  Report Type: 
  Country: None (occurrence: None)
  Receive Date: 20090626
  Receipt Date: 20090312
  Transmission Date: 20091009
  Serious: Yes (Life-Threatening, Hospitalization)
  Sender: FDA-Public Use
  Company Number: JP-ABBOTT-09P-087-0581664-00

PATIENT
  Age: 77 Year
  Sex: Male
  Weight: 75 kg

DRUGS (10)
  1. CLARITHROMYCIN [Interacting]
     Indication: ENTERITIS INFECTIOUS
     Route: 048
     Dates: start: 20090307, end: 20090308
  2. LOCHOL [Interacting]
     Indication: HYPERLIPIDAEMIA
     Route: 048
     Dates: start: 20071204, end: 20090309
  3. METOCLOPRAMIDE [Suspect]
     Indication: NAUSEA
     Dates: start: 20090307, end: 20090308
  4. NORVASC [Concomitant]
     Indication: HYPERTENSION
     Route: 048
     Dates: start: 20050830, end: 20090309
  5. NITOROL [Concomitant]
     Indication: ANGINA PECTORIS
     Dates: start: 20050830
  6. ASPIRIN [Concomitant]
     Indication: ANGINA PECTORIS
     Route: 048
     Dates: start: 20050830
  7. LENDORMIN [Concomitant]
     Indication: INSOMNIA
     Route: 048
     Dates: start: 20050725
  8. BIOFERMIN R [Concomitant]
     Indication: DIARRHOEA
     Route: 048
     Dates: start: 20090307, end: 20090308
  9. PRAMIEL [Concomitant]
     Indication: NAUSEA
     Route: 048
     Dates: start: 20090307, end: 20090308
  10. MUCOSTA [Concomitant]
     Indication: GASTRITIS
     Route: 048

REACTIONS (6)
  - DRUG INTERACTION [None]
  - DYSURIA [None]
  - GASTROINTESTINAL HYPERMOTILITY [None]
  - NEUROLEPTIC MALIGNANT SYNDROME [None]
  - RENAL FAILURE ACUTE [None]
  - RHABDOMYOLYSIS [None]
